FAERS Safety Report 6561379-8 (Version None)
Quarter: 2010Q1

REPORT INFORMATION
  Report Type: 
  Country: None (occurrence: None)
  Receive Date: 20100130
  Receipt Date: 20091015
  Transmission Date: 20100710
  Serious: No
  Sender: FDA-Public Use
  Company Number: US-ABBOTT-09P-163-0603627-00

PATIENT
  Sex: Female
  Weight: 81.72 kg

DRUGS (13)
  1. HUMIRA [Suspect]
     Indication: ANKYLOSING SPONDYLITIS
     Dates: start: 20090701
  2. EDIFEN [Concomitant]
     Indication: ANAPHYLACTIC REACTION
  3. FELODIPINE [Concomitant]
     Indication: HYPERTENSION
  4. ASPIRIN [Concomitant]
     Indication: PROPHYLAXIS
  5. PROAIR HFA [Concomitant]
     Indication: ASTHMA
  6. ALBUTEROL SULFATE AUTOHALER [Concomitant]
     Indication: ASTHMA
  7. DULCOLAX [Concomitant]
     Indication: CONSTIPATION
  8. PRILOSEC [Concomitant]
     Indication: DYSPEPSIA
  9. TRAMADOL [Concomitant]
     Indication: PAIN
  10. SULFASALAZINE [Concomitant]
     Indication: ANKYLOSING SPONDYLITIS
  11. LACTALOSE [Concomitant]
     Indication: CONSTIPATION
  12. IMITREX [Concomitant]
     Indication: MIGRAINE
  13. TYLENOL (CAPLET) [Concomitant]
     Indication: ANKYLOSING SPONDYLITIS

REACTIONS (2)
  - INCORRECT DOSE ADMINISTERED [None]
  - INJECTION SITE HAEMATOMA [None]
